FAERS Safety Report 7471114-7 (Version None)
Quarter: 2011Q2

REPORT INFORMATION
  Report Type: 
  Country: None (occurrence: None)
  Receive Date: 20110510
  Receipt Date: 20110505
  Transmission Date: 20111010
  Serious: Yes (Hospitalization)
  Sender: FDA-Public Use
  Company Number: GB-PFIZER INC-2011086994

PATIENT
  Age: 60 Year
  Sex: Female

DRUGS (7)
  1. ACEBUTOLOL [Concomitant]
  2. WARFARIN SODIUM [Interacting]
     Indication: PULMONARY EMBOLISM
  3. NIFEDIPINE [Concomitant]
  4. INDAPAMIDE [Concomitant]
  5. CEPHALEXIN [Interacting]
     Indication: URINARY TRACT INFECTION
  6. METRONIDAZOLE [Suspect]
     Indication: URINARY TRACT INFECTION
  7. TRIMETHOPRIM [Interacting]
     Indication: URINARY TRACT INFECTION

REACTIONS (12)
  - PYREXIA [None]
  - RETROPERITONEAL HAEMATOMA [None]
  - WHITE BLOOD CELL COUNT INCREASED [None]
  - MUSCLE HAEMORRHAGE [None]
  - ABDOMINAL PAIN [None]
  - DEEP VEIN THROMBOSIS [None]
  - HAEMOGLOBIN DECREASED [None]
  - HYPOVOLAEMIC SHOCK [None]
  - URETERIC OBSTRUCTION [None]
  - DRUG INTERACTION [None]
  - INTERNATIONAL NORMALISED RATIO INCREASED [None]
  - URINARY TRACT INFECTION [None]
